FAERS Safety Report 15175577 (Version 1)
Quarter: 2018Q3

REPORT INFORMATION
  Report Type: Report from Study
  Country: US (occurrence: US)
  Receive Date: 20180720
  Receipt Date: 20180720
  Transmission Date: 20181010
  Serious: No
  Sender: FDA-Public Use
  Company Number: US-AMGEN-USASL2018067398

PATIENT
  Age: 70 Year
  Sex: Female
  Weight: 70.3 kg

DRUGS (1)
  1. REPATHA [Suspect]
     Active Substance: EVOLOCUMAB
     Indication: ARTERIOSCLEROSIS
     Dosage: 140 MG, Q2WK
     Route: 058
     Dates: start: 20180512

REACTIONS (8)
  - Oral herpes [Unknown]
  - Blood glucose increased [Unknown]
  - Carbuncle [Unknown]
  - Oedema mouth [Unknown]
  - Myalgia [Recovered/Resolved]
  - Influenza [Recovered/Resolved]
  - Swelling [Unknown]
  - Eosinophil count decreased [Unknown]

NARRATIVE: CASE EVENT DATE: 201805
